FAERS Safety Report 10932591 (Version 1)
Quarter: 2015Q1

REPORT INFORMATION
  Report Type: Spontaneous
  Country: US (occurrence: None)
  Receive Date: 20150319
  Receipt Date: 20150319
  Transmission Date: 20150721
  Serious: No
  Sender: FDA-Public Use
  Company Number: None

PATIENT
  Age: 68 Year
  Sex: Female
  Weight: 52.16 kg

DRUGS (23)
  1. COLISTIMETHATE [Suspect]
     Active Substance: COLISTIMETHATE SODIUM
     Indication: CYSTIC FIBROSIS
     Dosage: 1 VIAL RECONSTITUTE
     Route: 055
     Dates: start: 20150206, end: 20150227
  2. AZELASTINE NASAL SPRAY [Concomitant]
  3. AZELASTINE HCL 0.05% EYE DROPS [Concomitant]
  4. VORICONOZOLE [Concomitant]
     Active Substance: VORICONAZOLE
  5. 1/2 CHOICE FUL MULTIVITAMIN SUPPLEMENT [Concomitant]
  6. AIRWAY CLEARANCE VE ST [Concomitant]
  7. BI-PAP MACHINE [Concomitant]
  8. ALLEGRA (FEXOFENADINE-HYDROCHLORIDE) [Concomitant]
  9. ALTERA NEBULIZER COMPRESSOR [Concomitant]
  10. COLISTIMETHATE [Suspect]
     Active Substance: COLISTIMETHATE SODIUM
     Indication: PSEUDOMONAS INFECTION
     Dosage: 1 VIAL RECONSTITUTE
     Route: 055
     Dates: start: 20150206, end: 20150227
  11. FLUTICASONE [Concomitant]
     Active Substance: FLUTICASONE\FLUTICASONE PROPIONATE
  12. 7% HYPERSALINE SOLUTION [Concomitant]
  13. PULMOZYME [Concomitant]
     Active Substance: DORNASE ALFA
  14. PROBIOTIC [Concomitant]
     Active Substance: PROBIOTICS NOS
  15. BIOTIN [Concomitant]
     Active Substance: BIOTIN
  16. ADVAIR DISCUS [Concomitant]
  17. CALCIUM W/VIT D [Concomitant]
  18. NEBULIZER COMPRESSOR [Concomitant]
  19. DIGOXIN. [Concomitant]
     Active Substance: DIGOXIN
  20. XOPENEX [Concomitant]
     Active Substance: LEVALBUTEROL HYDROCHLORIDE
  21. B-COMPLEX VIT [Concomitant]
  22. CAYSTON [Concomitant]
     Active Substance: AZTREONAM
  23. TAMOXIFEN [Concomitant]
     Active Substance: TAMOXIFEN

REACTIONS (5)
  - Product quality issue [None]
  - Condition aggravated [None]
  - Forced expiratory volume decreased [None]
  - Pulmonary congestion [None]
  - No therapeutic response [None]

NARRATIVE: CASE EVENT DATE: 20150217
